FAERS Safety Report 13922372 (Version 1)
Quarter: 2017Q3

REPORT INFORMATION
  Report Type: Spontaneous
  Country: None (occurrence: FR)
  Receive Date: 20170830
  Receipt Date: 20170830
  Transmission Date: 20171127
  Serious: Yes (Other)
  Sender: FDA-Public Use
  Company Number: FR-LABORATOIRE HRA PHARMA-2025322

PATIENT
  Age: 74 Year
  Sex: Male
  Weight: 70 kg

DRUGS (7)
  1. LOVENOX [Suspect]
     Active Substance: ENOXAPARIN SODIUM
  2. HYDROCORTISONE. [Suspect]
     Active Substance: HYDROCORTISONE
  3. INEXIUM (ESOMEPRAZOLE MAGNESIUM) [Suspect]
     Active Substance: ESOMEPRAZOLE MAGNESIUM
     Route: 048
  4. LASILIX (FUROSEMIDE) [Suspect]
     Active Substance: FUROSEMIDE
     Route: 048
  5. METOPIRONE [Suspect]
     Active Substance: METYRAPONE
     Indication: CUSHING^S SYNDROME
     Route: 048
     Dates: end: 20160411
  6. FLUCORTAC (FLUDROCORTISONE ACETATE) [Suspect]
     Active Substance: FLUDROCORTISONE ACETATE
     Route: 048
     Dates: start: 20160325, end: 20160412
  7. CITALOPRAM [Suspect]
     Active Substance: CITALOPRAM HYDROBROMIDE
     Route: 048

REACTIONS (1)
  - Blood potassium abnormal [None]
